FAERS Safety Report 7247244-1 (Version None)
Quarter: 2011Q1

REPORT INFORMATION
  Report Type: 
  Country: None (occurrence: None)
  Receive Date: 20110127
  Receipt Date: 20110125
  Transmission Date: 20110831
  Serious: Yes (Other)
  Sender: FDA-Public Use
  Company Number: DE-AMGEN-DEUCT2011003137

PATIENT
  Age: 70 Year
  Sex: Male

DRUGS (8)
  1. METFORMIN [Concomitant]
     Dosage: 500 MG, UNK
  2. CAPECITABINE [Suspect]
     Dosage: 625 MG/M2, UNK
     Route: 048
     Dates: start: 20101207, end: 20110112
  3. PANITUMUMAB [Suspect]
     Indication: GASTROOESOPHAGEAL CANCER
     Dosage: 9 MG/KG, Q2WK
     Dates: start: 20101207
  4. RAMIPRIL [Concomitant]
     Dosage: 10 MG, UNK
  5. EPIRUBICIN [Suspect]
     Dosage: 50 MG/M2, UNK
     Route: 042
     Dates: start: 20101207
  6. CISPLATIN [Suspect]
     Dosage: 60 MG/M2, UNK
     Route: 042
     Dates: start: 20101228
  7. CISPLATIN [Suspect]
     Dosage: 60 MG/M2, UNK
     Route: 042
     Dates: start: 20101207
  8. GLIMEPIRID [Concomitant]
     Dosage: 1 MG, UNK

REACTIONS (1)
  - PHIMOSIS [None]
